FAERS Safety Report 15764979 (Version 1)
Quarter: 2018Q4

REPORT INFORMATION
  Report Type: Report from Study
  Country: US (occurrence: US)
  Receive Date: 20181227
  Receipt Date: 20181227
  Transmission Date: 20190205
  Serious: Yes (Hospitalization, Other)
  Sender: FDA-Public Use
  Company Number: US-SA-2018SA302270

PATIENT
  Age: 62 Year
  Sex: Female

DRUGS (6)
  1. JARDIANCE [Concomitant]
     Active Substance: EMPAGLIFLOZIN
     Dosage: 25 MG, QD
  2. GEMFIBROZIL. [Concomitant]
     Active Substance: GEMFIBROZIL
     Dosage: 600 MG, BID
  3. LOSARTAN. [Concomitant]
     Active Substance: LOSARTAN
     Dosage: 100 MG, QD
  4. INSULIN GLARGINE [Suspect]
     Active Substance: INSULIN GLARGINE
     Indication: TYPE 2 DIABETES MELLITUS
     Dosage: 90 U, HS
     Route: 058
     Dates: start: 2005
  5. METFORMIN [Concomitant]
     Active Substance: METFORMIN HYDROCHLORIDE
     Dosage: 2000 MG, QD
  6. NP THYROID [Concomitant]
     Active Substance: LEVOTHYROXINE\LIOTHYRONINE
     Dosage: 60 MG, QD/ EMPTY STOMACH

REACTIONS (18)
  - Drug dispensed to wrong patient [Unknown]
  - Gallbladder disorder [Unknown]
  - Stress cardiomyopathy [Not Recovered/Not Resolved]
  - Pancreatitis [Recovered/Resolved]
  - Blood glucose fluctuation [Not Recovered/Not Resolved]
  - Pain [Not Recovered/Not Resolved]
  - Tremor [Recovered/Resolved]
  - Feeling abnormal [Recovered/Resolved]
  - Product storage error [Unknown]
  - Sleep disorder [Not Recovered/Not Resolved]
  - Blood glucose increased [Recovered/Resolved]
  - Cardiac disorder [Not Recovered/Not Resolved]
  - Drug ineffective [Unknown]
  - Pneumonia [Recovered/Resolved]
  - Hyperglycaemia [Recovered/Resolved]
  - Abdominal pain [Unknown]
  - Chest pain [Not Recovered/Not Resolved]
  - Product dose omission [Unknown]

NARRATIVE: CASE EVENT DATE: 2005
